FAERS Safety Report 23438747 (Version 1)
Quarter: 2024Q1

REPORT INFORMATION
  Report Type: Spontaneous
  Country: US (occurrence: US)
  Receive Date: 20240124
  Receipt Date: 20240124
  Transmission Date: 20240410
  Serious: Yes (Other)
  Sender: FDA-Public Use
  Company Number: US-SANOFI-01910834

PATIENT
  Age: 61 Year
  Sex: Female

DRUGS (2)
  1. HECTOROL [Suspect]
     Active Substance: DOXERCALCIFEROL
     Dosage: UNK
  2. CALCITRIOL [Concomitant]
     Active Substance: CALCITRIOL
     Dosage: UNK

REACTIONS (4)
  - Anaphylactic reaction [Unknown]
  - Palpitations [Unknown]
  - Dyspnoea [Unknown]
  - Throat tightness [Unknown]
